FAERS Safety Report 8208722-1 (Version None)
Quarter: 2012Q1

REPORT INFORMATION
  Report Type: 
  Country: None (occurrence: None)
  Receive Date: 20120314
  Receipt Date: 20120309
  Transmission Date: 20120608
  Serious: Yes (Death, Other)
  Sender: FDA-Public Use
  Company Number: US-PFIZER INC-2012063541

PATIENT
  Sex: Female
  Weight: 67.12 kg

DRUGS (7)
  1. INSULIN [Concomitant]
     Dosage: UNK
  2. BUMETANIDE [Concomitant]
     Dosage: UNK
  3. NORVASC [Concomitant]
     Dosage: UNK
  4. LANTUS [Concomitant]
     Dosage: UNK
  5. SYNTHROID [Concomitant]
     Dosage: UNK
  6. SPIRONOLACTONE [Concomitant]
     Dosage: UNK
  7. REVATIO [Suspect]
     Indication: PULMONARY FIBROSIS
     Dosage: 20 MG, 3X/DAY
     Route: 048

REACTIONS (1)
  - CARDIAC FAILURE CONGESTIVE [None]
